FAERS Safety Report 19158772 (Version 1)
Quarter: 2021Q2

REPORT INFORMATION
  Report Type: Spontaneous
  Country: PL (occurrence: PL)
  Receive Date: 20210420
  Receipt Date: 20210420
  Transmission Date: 20210717
  Serious: Yes (Life-Threatening, Hospitalization)
  Sender: FDA-Public Use
  Company Number: PL-LUPIN PHARMACEUTICALS INC.-2021-04900

PATIENT
  Age: 10 Year
  Sex: Female

DRUGS (2)
  1. H2NAO4P ??? H2O AND NA2HPO4 [Suspect]
     Active Substance: SODIUM PHOSPHATE, DIBASIC, ANHYDROUS\SODIUM PHOSPHATE, MONOBASIC, MONOHYDRATE
     Dosage: 150 MILLILITER, ENEMA
     Route: 054
  2. H2NAO4P ??? H2O AND NA2HPO4 [Suspect]
     Active Substance: SODIUM PHOSPHATE, DIBASIC, ANHYDROUS\SODIUM PHOSPHATE, MONOBASIC, MONOHYDRATE
     Indication: CONSTIPATION
     Dosage: 100 MILLILITER, ENEMA
     Route: 054

REACTIONS (10)
  - Toxicity to various agents [Recovering/Resolving]
  - Confusional state [Recovering/Resolving]
  - Tetany [Recovering/Resolving]
  - Asthenia [Recovering/Resolving]
  - Pupils unequal [Recovering/Resolving]
  - Electrolyte imbalance [Recovered/Resolved]
  - Dehydration [Recovering/Resolving]
  - Metabolic acidosis [Recovered/Resolved]
  - Tachycardia [Recovering/Resolving]
  - Lethargy [Recovering/Resolving]
